FAERS Safety Report 19647021 (Version 1)
Quarter: 2021Q3

REPORT INFORMATION
  Report Type: Report from Study
  Country: MX (occurrence: MX)
  Receive Date: 20210802
  Receipt Date: 20210802
  Transmission Date: 20211014
  Serious: Yes (Other)
  Sender: FDA-Public Use
  Company Number: MX-ASTRAZENECA-2021A650802

PATIENT
  Age: 46 Year
  Sex: Female
  Weight: 84 kg

DRUGS (5)
  1. XIGDUO XR [Suspect]
     Active Substance: DAPAGLIFLOZIN PROPANEDIOL\METFORMIN HYDROCHLORIDE
     Indication: DIABETES MELLITUS
     Dosage: 5/1000MG , ONE TABLET ORALLY EVERY 12 HOURS
     Route: 048
  2. BISOPROLOL [Concomitant]
     Active Substance: BISOPROLOL
     Indication: ARRHYTHMIA
     Dosage: FOR THREE MONTHS
     Route: 048
  3. SITAGLIPTIN [Concomitant]
     Active Substance: SITAGLIPTIN
     Indication: DIABETES MELLITUS
     Dosage: SINCE 6 YEARS AGO
     Route: 048
  4. PREGABALIN. [Concomitant]
     Active Substance: PREGABALIN
     Indication: DIABETIC NEUROPATHY
     Dosage: INITIATED A MONTH AGO
     Route: 048
  5. VITAMIN B12 NOS/VITAMIN B1 NOS [Concomitant]
     Indication: MUSCLE DISORDER

REACTIONS (7)
  - Blood glucose increased [Unknown]
  - Menopause [Unknown]
  - Neuropathic arthropathy [Unknown]
  - Thirst [Not Recovered/Not Resolved]
  - Dry mouth [Not Recovered/Not Resolved]
  - Hyperhidrosis [Unknown]
  - Dizziness [Recovering/Resolving]
